FAERS Safety Report 17163530 (Version 1)
Quarter: 2019Q4

REPORT INFORMATION
  Report Type: Spontaneous
  Country: DK (occurrence: DK)
  Receive Date: 20191217
  Receipt Date: 20191217
  Transmission Date: 20200122
  Serious: Yes (Hospitalization, Other)
  Sender: FDA-Public Use
  Company Number: DK-ALK-ABELLO A/S-2019AA004284

PATIENT

DRUGS (1)
  1. GRAZAX [Suspect]
     Active Substance: PHLEUM PRATENSE POLLEN
     Indication: PRODUCT USED FOR UNKNOWN INDICATION
     Dosage: UNK
     Dates: start: 2019

REACTIONS (5)
  - Swollen tongue [Unknown]
  - Dysphagia [Unknown]
  - Chest discomfort [Unknown]
  - Tongue eruption [Unknown]
  - Pruritus [Unknown]

NARRATIVE: CASE EVENT DATE: 2019
